FAERS Safety Report 18068840 (Version 1)
Quarter: 2020Q3

REPORT INFORMATION
  Report Type: Spontaneous
  Country: US (occurrence: US)
  Receive Date: 20200724
  Receipt Date: 20200724
  Transmission Date: 20201103
  Serious: No
  Sender: FDA-Public Use
  Company Number: US-009507513-2007USA007932

PATIENT
  Age: 69 Year
  Sex: Female

DRUGS (7)
  1. COREG [Concomitant]
     Active Substance: CARVEDILOL
  2. HYDRALAZINE [Concomitant]
     Active Substance: HYDRALAZINE HYDROCHLORIDE
  3. TORSEMIDE. [Concomitant]
     Active Substance: TORSEMIDE
  4. ASPIRIN. [Concomitant]
     Active Substance: ASPIRIN
     Dosage: LOW DOSE
  5. KEYTRUDA [Suspect]
     Active Substance: PEMBROLIZUMAB
     Indication: MALIGNANT PERITONEAL NEOPLASM
     Dosage: 200 MG, EVERY 3 WEEKS
     Route: 042
     Dates: start: 20200609, end: 20200630
  6. LEVOTHYROXINE SODIUM. [Concomitant]
     Active Substance: LEVOTHYROXINE SODIUM
  7. PAXIL [Concomitant]
     Active Substance: PAROXETINE HYDROCHLORIDE

REACTIONS (6)
  - SARS-CoV-2 test [Recovered/Resolved]
  - Pruritus [Not Recovered/Not Resolved]
  - Product use in unapproved indication [Unknown]
  - Diarrhoea [Recovered/Resolved]
  - Rash erythematous [Recovered/Resolved]
  - Product dose omission issue [Unknown]

NARRATIVE: CASE EVENT DATE: 202006
